FAERS Safety Report 6724698-8 (Version None)
Quarter: 2010Q2

REPORT INFORMATION
  Report Type: 
  Country: None (occurrence: None)
  Receive Date: 20100513
  Receipt Date: 20100505
  Transmission Date: 20101027
  Serious: Yes (Hospitalization)
  Sender: FDA-Public Use
  Company Number: FR-GENENTECH-298613

PATIENT
  Sex: Male
  Weight: 73 kg

DRUGS (1)
  1. MABTHERA [Suspect]
     Indication: THROMBOTIC MICROANGIOPATHY
     Dosage: 670 MG, UNK
     Route: 042
     Dates: start: 20091026, end: 20091130

REACTIONS (2)
  - ANGIOEDEMA [None]
  - STAPHYLOCOCCAL SEPSIS [None]
